FAERS Safety Report 15425663 (Version 5)
Quarter: 2018Q4

REPORT INFORMATION
  Report Type: Spontaneous
  Country: CA (occurrence: CA)
  Receive Date: 20180925
  Receipt Date: 20181217
  Transmission Date: 20190204
  Serious: Yes (Hospitalization, Other)
  Sender: FDA-Public Use
  Company Number: CA-PFIZER INC-2018386636

PATIENT
  Age: 49 Year
  Sex: Female

DRUGS (8)
  1. SANDOSTATIN LAR DEPOT [Suspect]
     Active Substance: OCTREOTIDE ACETATE
     Indication: CARCINOID TUMOUR
     Dosage: 30 MG, MONTHLY (Q4WEEKS)
     Route: 030
     Dates: start: 20151209
  2. SANDOSTATIN LAR DEPOT [Suspect]
     Active Substance: OCTREOTIDE ACETATE
     Dosage: UNK
     Route: 030
     Dates: start: 20181010
  3. SANDOSTATIN LAR DEPOT [Suspect]
     Active Substance: OCTREOTIDE ACETATE
     Dosage: UNK
  4. PANTOPRAZOLE [Suspect]
     Active Substance: PANTOPRAZOLE
     Dosage: 40 MG, 2X/DAY (BID)
     Route: 065
     Dates: start: 201706
  5. SULFATRIM [Concomitant]
     Active Substance: SULFAMETHOXAZOLE\TRIMETHOPRIM
     Dosage: UNK
     Dates: end: 2016
  6. DOMPERIDONE [Concomitant]
     Active Substance: DOMPERIDONE
     Dosage: 10 MG, UNK
     Dates: start: 201707
  7. TEMODAL [Suspect]
     Active Substance: TEMOZOLOMIDE
     Dosage: 335 MG, 1X/DAY (QD)
     Route: 065
     Dates: start: 201606, end: 2018
  8. DEXILANT [Concomitant]
     Active Substance: DEXLANSOPRAZOLE
     Dosage: UNK

REACTIONS (33)
  - Carcinoid tumour [Unknown]
  - Erythema nodosum [Unknown]
  - Gait disturbance [Unknown]
  - Blood pressure systolic decreased [Unknown]
  - Heart rate decreased [Unknown]
  - Injection site pain [Unknown]
  - Gastritis fungal [Unknown]
  - Influenza [Unknown]
  - Nasopharyngitis [Unknown]
  - Needle issue [Unknown]
  - Dehydration [Unknown]
  - Pain [Unknown]
  - Psychiatric symptom [Unknown]
  - Body temperature decreased [Unknown]
  - Contusion [Recovered/Resolved]
  - Metastases to liver [Recovering/Resolving]
  - Malignant neoplasm progression [Unknown]
  - Nausea [Recovered/Resolved]
  - Nausea [Unknown]
  - Musculoskeletal pain [Recovered/Resolved]
  - Alopecia [Unknown]
  - Myocardial infarction [Unknown]
  - Fatigue [Unknown]
  - Hypotension [Unknown]
  - Discomfort [Unknown]
  - Mood altered [Unknown]
  - Oropharyngeal pain [Unknown]
  - Bronchial disorder [Unknown]
  - Stress [Unknown]
  - Feeling hot [Unknown]
  - Back pain [Recovering/Resolving]
  - Headache [Unknown]
  - Cough [Unknown]

NARRATIVE: CASE EVENT DATE: 20170904
